FAERS Safety Report 4766676-4 (Version None)
Quarter: 2005Q3

REPORT INFORMATION
  Report Type: 
  Country: None (occurrence: None)
  Receive Date: 20050909
  Receipt Date: 20050906
  Transmission Date: 20060218
  Serious: Yes (Other)
  Sender: FDA-Public Use
  Company Number: 005591

PATIENT
  Age: 72 Year
  Sex: Female

DRUGS (4)
  1. MEDROXYPROGESTERONE [Suspect]
     Dosage: ORAL
     Route: 048
     Dates: start: 19790101, end: 20020901
  2. PROVERA [Suspect]
     Dosage: ORAL
     Route: 048
     Dates: start: 19790101, end: 20020901
  3. PREMARIN [Suspect]
     Dosage: ORAL
     Route: 048
     Dates: start: 19790101, end: 19960101
  4. PREMPRO [Suspect]
     Dosage: ORAL
     Route: 048
     Dates: start: 20021001, end: 20030428

REACTIONS (1)
  - BREAST CANCER FEMALE [None]
